FAERS Safety Report 9791802 (Version 2)
Quarter: 2014Q1

REPORT INFORMATION
  Report Type: Spontaneous
  Country: US (occurrence: US)
  Receive Date: 20140102
  Receipt Date: 20140124
  Transmission Date: 20141002
  Serious: Yes (Death)
  Sender: FDA-Public Use
  Company Number: US-JNJFOC-20131217841

PATIENT
  Sex: Female
  Weight: 73.03 kg

DRUGS (5)
  1. XARELTO [Suspect]
     Indication: THROMBOSIS PROPHYLAXIS
     Route: 048
  2. ATENOLOL [Concomitant]
     Route: 065
  3. OSCAL NOS [Concomitant]
     Route: 065
  4. ZAROXOLYN [Concomitant]
     Route: 065
  5. SPIRONOLACTONE [Concomitant]
     Route: 065

REACTIONS (1)
  - Death [Fatal]
